FAERS Safety Report 22371082 (Version 1)
Quarter: 2023Q2

REPORT INFORMATION
  Report Type: Spontaneous
  Country: US (occurrence: US)
  Receive Date: 20230526
  Receipt Date: 20230526
  Transmission Date: 20230721
  Serious: No
  Sender: FDA-Public Use
  Company Number: US-SA-SAC20230525001004

PATIENT
  Age: 54 Year
  Sex: Male

DRUGS (3)
  1. JEVTANA [Suspect]
     Active Substance: CABAZITAXEL
     Indication: Prostate cancer
     Dosage: 30 MG, Q3W
     Dates: start: 20230419
  2. JEVTANA [Suspect]
     Active Substance: CABAZITAXEL
     Dosage: UNK UNK, Q3W
     Route: 041
     Dates: start: 20230427
  3. JEVTANA [Suspect]
     Active Substance: CABAZITAXEL
     Dosage: 33 MG, Q3W

REACTIONS (1)
  - Weight decreased [Unknown]

NARRATIVE: CASE EVENT DATE: 20230524
